FAERS Safety Report 4665078-9 (Version None)
Quarter: 2005Q2

REPORT INFORMATION
  Report Type: 
  Country: None (occurrence: None)
  Receive Date: 20050517
  Receipt Date: 20050502
  Transmission Date: 20051028
  Serious: Yes (Hospitalization)
  Sender: FDA-Public Use
  Company Number: EWC050543900

PATIENT
  Age: 32 Year
  Sex: Male

DRUGS (3)
  1. OLANZAPINE [Suspect]
     Indication: PHOBIA
     Dosage: 5 MG/1 DAY
     Dates: start: 19980101
  2. FENOBARBITAL [Concomitant]
  3. DINTOINA (PHENOYTOIN SODIUM) [Concomitant]

REACTIONS (3)
  - CHOLELITHIASIS [None]
  - HEPATIC FIBROSIS [None]
  - ROAD TRAFFIC ACCIDENT [None]
